FAERS Safety Report 19807294 (Version 1)
Quarter: 2021Q3

REPORT INFORMATION
  Report Type: Spontaneous
  Country: US (occurrence: US)
  Receive Date: 20210908
  Receipt Date: 20210908
  Transmission Date: 20211014
  Serious: No
  Sender: FDA-Public Use
  Company Number: US-AMERICAN REGENT INC-2021001758

PATIENT
  Age: 81 Year
  Sex: Female

DRUGS (2)
  1. INJECTAFER [Suspect]
     Active Substance: FERRIC CARBOXYMALTOSE
     Dosage: 750 MILLIGRAM, SINGLE (A WEEK LATER)
     Route: 042
     Dates: start: 2021, end: 2021
  2. INJECTAFER [Suspect]
     Active Substance: FERRIC CARBOXYMALTOSE
     Indication: PRODUCT USED FOR UNKNOWN INDICATION
     Dosage: UNK, FIRST INJECTAFER INFUSION
     Route: 042
     Dates: start: 20210621, end: 20210621

REACTIONS (3)
  - Restlessness [Unknown]
  - Muscle twitching [Unknown]
  - Product quality issue [Unknown]

NARRATIVE: CASE EVENT DATE: 20210621
